FAERS Safety Report 4411996-6 (Version None)
Quarter: 2004Q3

REPORT INFORMATION
  Report Type: 
  Country: None (occurrence: None)
  Receive Date: 20040730
  Receipt Date: 20040622
  Transmission Date: 20050211
  Serious: Yes (Other)
  Sender: FDA-Public Use
  Company Number: PHEH2004US06770

PATIENT
  Age: 76 Year
  Sex: Female
  Weight: 60 kg

DRUGS (5)
  1. MIACALCIN [Suspect]
     Indication: OSTEOPENIA
     Dosage: 200 IU QD
     Route: 045
     Dates: start: 20040329, end: 20040329
  2. FEMARA [Concomitant]
     Indication: BREAST CANCER
     Dosage: 2.5 MG, QD
     Dates: start: 20031110
  3. DYAZIDE [Concomitant]
     Indication: HYPERTENSION
     Dates: start: 20011001
  4. CLONIDINE HCL [Concomitant]
     Indication: HOT FLUSH
     Dosage: .2 MG, QD
     Dates: start: 20021001
  5. MIRAPEX [Concomitant]
     Indication: RESTLESS LEGS SYNDROME
     Dosage: .25 MG, TID
     Dates: start: 20021001

REACTIONS (5)
  - ARRHYTHMIA [None]
  - FEELING ABNORMAL [None]
  - HEART RATE INCREASED [None]
  - LOCAL SWELLING [None]
  - PALPITATIONS [None]
